FAERS Safety Report 19743766 (Version 1)
Quarter: 2021Q3

REPORT INFORMATION
  Report Type: Other
  Country: US (occurrence: US)
  Receive Date: 20210825
  Receipt Date: 20210825
  Transmission Date: 20211014
  Serious: Yes (Hospitalization)
  Sender: FDA-Public Use
  Company Number: US-ROCHE-2806541

PATIENT
  Sex: Female

DRUGS (1)
  1. PULMOZYME [Suspect]
     Active Substance: DORNASE ALFA
     Indication: CYSTIC FIBROSIS
     Dosage: NEBULIZE THE CONTENTS OF 1 VIAL EVERY DAY?30 X 2.5 ML AMPULES?CONTENT DOSE: 2.5 ML?DISPENSE: 30
     Route: 065

REACTIONS (4)
  - COVID-19 [Unknown]
  - Inappropriate schedule of product administration [Unknown]
  - Off label use [Unknown]
  - No adverse event [Unknown]
